FAERS Safety Report 4269954-0 (Version None)
Quarter: 2004Q1

REPORT INFORMATION
  Report Type: 
  Country: None (occurrence: None)
  Receive Date: 20040112
  Receipt Date: 20031230
  Transmission Date: 20041129
  Serious: Yes (Hospitalization)
  Sender: FDA-Public Use
  Company Number: US-JNJFOC-20040100319

PATIENT
  Age: 67 Year
  Sex: Female

DRUGS (19)
  1. INFLIXIMAB (INFLIXIMAB, RECOMBINANT) LYOPHILIZED POWDER [Suspect]
     Indication: RHEUMATOID ARTHRITIS
     Dosage: INTRAVENOUS
     Route: 042
     Dates: start: 20020730, end: 20021201
  2. PREDNISONE [Concomitant]
  3. METHOTREXATE [Concomitant]
  4. FOLIC ACID [Concomitant]
  5. BENACAR (ALL OTHER THERAPEUTIC PRODUCTS) [Concomitant]
  6. GLUCOTROL [Concomitant]
  7. TOPROL (METOPROLOL SUCCINATE) [Concomitant]
  8. ESTRADIOL [Concomitant]
  9. HYDROCHLOROTHIAZIDE [Concomitant]
  10. SYNTHROID [Concomitant]
  11. NORVASC [Concomitant]
  12. LIPITOR [Concomitant]
  13. DIGITEX (DIGOXIN) [Concomitant]
  14. ASPIRIN [Concomitant]
  15. ZINC (ZINC) [Concomitant]
  16. CALCIUM (CALCIUM) [Concomitant]
  17. LASIX [Concomitant]
  18. VITAMIN C (ASCORBIC ACID) [Concomitant]
  19. VITAMIN E [Concomitant]

REACTIONS (5)
  - ADNEXA UTERI MASS [None]
  - ARTHRALGIA [None]
  - OVARIAN ADENOMA [None]
  - PYREXIA [None]
  - WHITE BLOOD CELL COUNT INCREASED [None]
